FAERS Safety Report 7768988-9 (Version None)
Quarter: 2011Q3

REPORT INFORMATION
  Report Type: 
  Country: None (occurrence: None)
  Receive Date: 20110922
  Receipt Date: 20101227
  Transmission Date: 20111222
  Serious: Yes (Hospitalization, Other)
  Sender: FDA-Public Use
  Company Number: US-ASTRAZENECA-2010SE60886

PATIENT
  Age: 65 Year
  Sex: Female
  Weight: 60.3 kg

DRUGS (6)
  1. SEROQUEL [Suspect]
     Indication: INSOMNIA
     Route: 048
     Dates: start: 20101223
  2. PROTONIX [Concomitant]
  3. SEROQUEL [Suspect]
     Indication: ANXIETY
     Route: 048
     Dates: start: 20101223
  4. OMEPRAZOLE [Concomitant]
  5. LORAZEPAM [Concomitant]
  6. LEXAPRO [Concomitant]

REACTIONS (10)
  - ANXIETY [None]
  - SUICIDAL IDEATION [None]
  - URINARY INCONTINENCE [None]
  - DYSKINESIA [None]
  - WEIGHT INCREASED [None]
  - INCREASED APPETITE [None]
  - DRY MOUTH [None]
  - DRUG INEFFECTIVE [None]
  - DIARRHOEA [None]
  - BLOOD PRESSURE SYSTOLIC INCREASED [None]
